FAERS Safety Report 6993906-0 (Version None)
Quarter: 2010Q3

REPORT INFORMATION
  Report Type: 
  Country: None (occurrence: None)
  Receive Date: 20100917
  Receipt Date: 20100608
  Transmission Date: 20110219
  Serious: No
  Sender: FDA-Public Use
  Company Number: US-ASTRAZENECA-2010SE26621

PATIENT
  Age: 52 Year
  Sex: Female
  Weight: 95.3 kg

DRUGS (2)
  1. SEROQUEL [Suspect]
     Indication: BIPOLAR DISORDER
     Route: 048
     Dates: start: 20080101, end: 20100501
  2. SEROQUEL [Suspect]
     Indication: POST-TRAUMATIC STRESS DISORDER
     Route: 048
     Dates: start: 20080101, end: 20100501

REACTIONS (4)
  - DRUG DOSE OMISSION [None]
  - NAUSEA [None]
  - SLEEP PHASE RHYTHM DISTURBANCE [None]
  - WEIGHT INCREASED [None]
